FAERS Safety Report 9717416 (Version 1)
Quarter: 2013Q4

REPORT INFORMATION
  Report Type: Spontaneous
  Country: US (occurrence: US)
  Receive Date: 20131127
  Receipt Date: 20131127
  Transmission Date: 20140711
  Serious: No
  Sender: FDA-Public Use
  Company Number: US-GILEAD-2008-0019671

PATIENT
  Sex: Female
  Weight: 71.67 kg

DRUGS (9)
  1. LETAIRIS [Suspect]
     Indication: PULMONARY ARTERIAL HYPERTENSION
     Route: 048
  2. REVATIO [Concomitant]
  3. COUMADIN [Concomitant]
  4. LISINOPRIL [Concomitant]
  5. METOPROLOL [Concomitant]
  6. NIFEDIPINE [Concomitant]
  7. LEVOTHYROXINE [Concomitant]
  8. RENAGEL [Concomitant]
  9. TYLENOL [Concomitant]

REACTIONS (1)
  - Constipation [Unknown]
